FAERS Safety Report 13150868 (Version 1)
Quarter: 2017Q1

REPORT INFORMATION
  Report Type: Other
  Country: FR (occurrence: FR)
  Receive Date: 20170125
  Receipt Date: 20170125
  Transmission Date: 20170428
  Serious: Yes (Death, Other)
  Sender: FDA-Public Use
  Company Number: FR-TAKEDA-2017TEU000217

PATIENT
  Age: 58 Year
  Sex: Male

DRUGS (30)
  1. OGASTORO [Suspect]
     Active Substance: LANSOPRAZOLE
     Indication: PROPHYLAXIS AGAINST GASTROINTESTINAL ULCER
     Dosage: UNK
     Route: 048
     Dates: start: 20161120, end: 20161123
  2. CICLOSPORIN [Suspect]
     Active Substance: CYCLOSPORINE
     Indication: HEART TRANSPLANT
     Dosage: 40 ?G, QD
     Route: 050
     Dates: start: 20161120, end: 20161128
  3. CORDARONE [Suspect]
     Active Substance: AMIODARONE HYDROCHLORIDE
     Indication: ARRHYTHMIA
     Dosage: UNK
     Route: 042
     Dates: start: 20161123, end: 20161128
  4. PROPOFOL. [Suspect]
     Active Substance: PROPOFOL
     Indication: ANAESTHESIA
     Dosage: UNK
     Route: 042
     Dates: start: 20161117, end: 20161128
  5. LEVOTHYROX [Suspect]
     Active Substance: LEVOTHYROXINE
     Indication: HYPOTHYROIDISM
     Dosage: UNK
     Route: 048
     Dates: start: 20161123, end: 20161125
  6. ADRENALINE                         /00003901/ [Concomitant]
     Active Substance: EPINEPHRINE
     Dosage: UNK
     Dates: start: 20061121
  7. VASTEN                             /00880402/ [Suspect]
     Active Substance: PRAVASTATIN SODIUM
     Indication: HYPERCHOLESTEROLAEMIA
     Dosage: UNK
     Route: 048
     Dates: start: 20161122, end: 20161125
  8. EUPANTOL [Concomitant]
     Active Substance: PANTOPRAZOLE SODIUM
     Dosage: UNK
     Dates: start: 20161117, end: 20161120
  9. MIDAZOLAM [Concomitant]
     Active Substance: MIDAZOLAM HYDROCHLORIDE
     Dosage: UNK
     Dates: start: 20161117, end: 20161128
  10. ISUPREL [Concomitant]
     Active Substance: ISOPROTERENOL HYDROCHLORIDE
     Dosage: UNK
     Dates: start: 20161117, end: 20161128
  11. NIMBEX [Concomitant]
     Active Substance: CISATRACURIUM BESYLATE
     Dosage: UNK
     Dates: start: 20161128
  12. VANCOMYCINE SANDOZ [Concomitant]
     Active Substance: VANCOMYCIN
     Dosage: UNK
     Dates: start: 20161128
  13. CELLCEPT [Suspect]
     Active Substance: MYCOPHENOLATE MOFETIL\MYCOPHENOLATE MOFETIL HYDROCHLORIDE
     Indication: HEART TRANSPLANT
     Dosage: 1 G, TID
     Route: 048
     Dates: start: 20161117, end: 20161128
  14. HEPARINE SODIQUE PANPHARMA [Suspect]
     Active Substance: HEPARIN SODIUM
     Indication: THROMBOSIS PROPHYLAXIS
     Dosage: 5000 IU, QD
     Route: 058
     Dates: start: 20161120, end: 20161128
  15. SUFENTA [Concomitant]
     Active Substance: SUFENTANIL CITRATE
     Dosage: UNK
     Dates: start: 20161117, end: 20161128
  16. PRIMPERAN [Concomitant]
     Active Substance: METOCLOPRAMIDE HYDROCHLORIDE
     Dosage: UNK
     Dates: start: 20161128
  17. N-ACETYLCYSTEINE [Concomitant]
     Active Substance: ACETYLCYSTEINE
     Dosage: UNK
     Dates: start: 20161127, end: 20161128
  18. ERYTHROMYCIN. [Suspect]
     Active Substance: ERYTHROMYCIN
     Indication: PRODUCT USED FOR UNKNOWN INDICATION
     Dosage: UNK
     Route: 048
     Dates: start: 20161125, end: 20161128
  19. SOLU-MEDROL [Suspect]
     Active Substance: METHYLPREDNISOLONE SODIUM SUCCINATE
     Indication: HEART TRANSPLANT
     Dosage: UNK
     Route: 042
     Dates: start: 20161117, end: 20161128
  20. BACTRIM [Suspect]
     Active Substance: SULFAMETHOXAZOLE\TRIMETHOPRIM
     Indication: PRODUCT USED FOR UNKNOWN INDICATION
     Dosage: UNK
     Route: 042
     Dates: start: 20161121, end: 20161125
  21. AZANTAC [Suspect]
     Active Substance: RANITIDINE HYDROCHLORIDE
     Indication: PROPHYLAXIS AGAINST GASTROINTESTINAL ULCER
     Dosage: UNK
     Route: 048
     Dates: start: 20161123, end: 20161128
  22. CANCIDAS [Concomitant]
     Active Substance: CASPOFUNGIN ACETATE
     Dosage: UNK
     Dates: start: 20161126, end: 20161128
  23. AMIKACINE                          /00391001/ [Suspect]
     Active Substance: AMIKACIN
     Indication: PROPHYLAXIS
     Dosage: 2400 MG, UNK
     Route: 065
     Dates: start: 20161118, end: 20161126
  24. DOBUTAMINE [Concomitant]
     Active Substance: DOBUTAMINE\DOBUTAMINE HYDROCHLORIDE
     Dosage: UNK
     Dates: start: 20161117, end: 20161118
  25. TIENAM [Concomitant]
     Active Substance: CILASTATIN SODIUM\IMIPENEM
     Dosage: UNK
     Dates: start: 20161126, end: 20161128
  26. ACICLOVIR [Concomitant]
     Active Substance: ACYCLOVIR
     Dosage: UNK
     Dates: start: 20161127, end: 20161128
  27. TAZOCILLINE [Suspect]
     Active Substance: PIPERACILLIN SODIUM\TAZOBACTAM SODIUM
     Indication: PROPHYLAXIS
     Dosage: 4 G, TID
     Route: 042
     Dates: start: 20161118, end: 20161126
  28. FUNGIZONE [Suspect]
     Active Substance: AMPHOTERICIN B
     Indication: PROPHYLAXIS
     Dosage: UNK, TID
     Route: 048
     Dates: start: 20161119, end: 20161128
  29. LASILIX                            /00032601/ [Concomitant]
     Active Substance: FUROSEMIDE
     Dosage: UNK
     Dates: start: 20161117, end: 20161119
  30. NOREPINEPHRINE [Concomitant]
     Active Substance: NOREPINEPHRINE\NOREPINEPHRINE BITARTRATE
     Dosage: UNK
     Dates: start: 20161117, end: 20161128

REACTIONS (1)
  - Hepatitis fulminant [Fatal]

NARRATIVE: CASE EVENT DATE: 20161125
